FAERS Safety Report 17082756 (Version 1)
Quarter: 2019Q4

REPORT INFORMATION
  Report Type: Other
  Country: NL (occurrence: NL)
  Receive Date: 20191127
  Receipt Date: 20191127
  Transmission Date: 20200122
  Serious: Yes (Other)
  Sender: FDA-Public Use
  Company Number: NL-ASPEN-GLO2019NL011598

PATIENT
  Age: 7 Year
  Sex: Male

DRUGS (10)
  1. DEXAMETHASONE. [Suspect]
     Active Substance: DEXAMETHASONE
     Indication: NAUSEA
     Route: 065
  2. GRANISETRON [Concomitant]
     Active Substance: GRANISETRON
     Indication: NAUSEA
     Route: 065
  3. TIGECYCLINE. [Concomitant]
     Active Substance: TIGECYCLINE
     Indication: MASTOIDITIS
     Dosage: 2.4 MG/KG/DAY IN 2 DOSES
     Route: 042
  4. DEXAMETHASONE. [Suspect]
     Active Substance: DEXAMETHASONE
     Indication: VOMITING
  5. TIGECYCLINE. [Concomitant]
     Active Substance: TIGECYCLINE
     Dosage: 3 DROPS, 3X/D
     Route: 061
  6. GRANISETRON [Concomitant]
     Active Substance: GRANISETRON
     Indication: VOMITING
  7. IMIPENEM AND CILASTATIN [Concomitant]
     Active Substance: CILASTATIN SODIUM\IMIPENEM
     Indication: MASTOIDITIS
     Dosage: 60/60 MG/KG/DAY IN 2-4 DOSES
     Route: 042
  8. IMIPENEM AND CILASTATIN [Concomitant]
     Active Substance: CILASTATIN SODIUM\IMIPENEM
     Dosage: 5/5 MG/ML; THREE DROPS THREE TIMES DAILY
     Route: 061
  9. CLOFAZIMINE [Concomitant]
     Active Substance: CLOFAZIMINE
     Indication: MASTOIDITIS
     Dosage: IF WEIGHT }40KG, THEN 100MG
     Route: 048
  10. AZITHROMYCIN ANHYDROUS. [Concomitant]
     Active Substance: AZITHROMYCIN ANHYDROUS
     Indication: MASTOIDITIS
     Dosage: 10 MG/KG, QD
     Route: 048

REACTIONS (2)
  - Weight increased [Recovered/Resolved]
  - Glucocorticoid deficiency [Recovered/Resolved]
